FAERS Safety Report 9630544 (Version 4)
Quarter: 2013Q4

REPORT INFORMATION
  Report Type: Spontaneous
  Country: GB (occurrence: GB)
  Receive Date: 20131018
  Receipt Date: 20131206
  Transmission Date: 20140711
  Serious: Yes (Hospitalization)
  Sender: FDA-Public Use
  Company Number: PHFR2013GB005832

PATIENT
  Age: 52 Year
  Sex: Male

DRUGS (3)
  1. CLOZARIL [Suspect]
     Indication: SCHIZOPHRENIA
     Dosage: 425 MG, DAILY
     Route: 048
     Dates: start: 20051111
  2. CLOZARIL [Suspect]
     Dosage: 375 MG, DAILY
     Route: 048
  3. INSULIN [Concomitant]
     Indication: TYPE 1 DIABETES MELLITUS
     Dosage: UNK UKN, UNK

REACTIONS (7)
  - Cardiac disorder [Recovered/Resolved]
  - Malaise [Recovering/Resolving]
  - Urinary tract infection [Recovered/Resolved]
  - Circulatory collapse [Recovered/Resolved]
  - Chest pain [Recovered/Resolved]
  - Pneumonia [Recovered/Resolved]
  - Confusional state [Recovered/Resolved]
